FAERS Safety Report 11435677 (Version 1)
Quarter: 2015Q3

REPORT INFORMATION
  Report Type: Spontaneous
  Country: US (occurrence: US)
  Receive Date: 20150831
  Receipt Date: 20150831
  Transmission Date: 20151125
  Serious: No
  Sender: FDA-Public Use
  Company Number: CHPA2015US010116

PATIENT
  Age: 35 Year
  Sex: Female

DRUGS (1)
  1. VOLTAREN [Suspect]
     Active Substance: DICLOFENAC SODIUM
     Indication: INFLAMMATION
     Dosage: UNK
     Route: 061
     Dates: end: 201407

REACTIONS (9)
  - Myositis [Unknown]
  - Drug administered at inappropriate site [Unknown]
  - Skin burning sensation [Recovered/Resolved]
  - Normal newborn [Recovered/Resolved]
  - Rash [Recovered/Resolved]
  - Product use issue [Unknown]
  - Prolonged labour [Recovered/Resolved]
  - Maternal exposure before pregnancy [Unknown]
  - Tenderness [Unknown]

NARRATIVE: CASE EVENT DATE: 201506
